FAERS Safety Report 6346275-3 (Version None)
Quarter: 2009Q3

REPORT INFORMATION
  Report Type: 
  Country: None (occurrence: None)
  Receive Date: 20090909
  Receipt Date: 20090831
  Transmission Date: 20100115
  Serious: Yes (Hospitalization)
  Sender: FDA-Public Use
  Company Number: PHHY2009ZA36926

PATIENT
  Sex: Female

DRUGS (3)
  1. DIOVAN HCT [Suspect]
     Dosage: 160/12.5 MG, UNK
  2. EXFORGE [Suspect]
     Dosage: 160/5 MG, UNK
  3. EXFORGE [Suspect]
     Dosage: 160/10 MG, UNK

REACTIONS (4)
  - BLOOD PRESSURE INADEQUATELY CONTROLLED [None]
  - INCORRECT DOSE ADMINISTERED [None]
  - RASH [None]
  - SURGERY [None]
